FAERS Safety Report 5977485-2 (Version None)
Quarter: 2008Q4

REPORT INFORMATION
  Report Type: 
  Country: None (occurrence: None)
  Receive Date: 20081202
  Receipt Date: 20081114
  Transmission Date: 20090506
  Serious: Yes (Death, Life-Threatening)
  Sender: FDA-Public Use
  Company Number: 2008S1000377

PATIENT
  Sex: Male
  Weight: 72 kg

DRUGS (11)
  1. CUBICIN [Suspect]
     Indication: BACTERAEMIA
     Dosage: 10.3 MG/KG; Q24H; IV
     Route: 042
  2. ACYCLOVIR [Concomitant]
  3. ADVAIR HFA [Concomitant]
  4. ALLOPURINOL [Concomitant]
  5. ASPIRIN [Concomitant]
  6. ROSUVASTATIN [Concomitant]
  7. POTASSIUM CHLORIDE [Suspect]
  8. LISINOPRIL [Concomitant]
  9. TORSEMIDE [Concomitant]
  10. ZOSYN [Concomitant]
  11. VANCOMYCIN [Concomitant]

REACTIONS (3)
  - HEPATIC ENZYME INCREASED [None]
  - SKIN EXFOLIATION [None]
  - SUBDURAL HAEMATOMA [None]
